FAERS Safety Report 10274495 (Version 1)
Quarter: 2014Q3

REPORT INFORMATION
  Report Type: Spontaneous
  Country: US (occurrence: US)
  Receive Date: 20140702
  Receipt Date: 20140702
  Transmission Date: 20150326
  Serious: No
  Sender: FDA-Public Use
  Company Number: US-PFIZER INC-2014180805

PATIENT
  Age: 63 Year
  Sex: Female

DRUGS (2)
  1. LOSARTAN [Concomitant]
     Active Substance: LOSARTAN
     Indication: HYPERTENSION
     Dosage: UNK
     Route: 048
     Dates: start: 2011
  2. ADVIL [Suspect]
     Active Substance: IBUPROFEN
     Indication: PAIN IN JAW
     Dosage: TWO TABLETS THREE TIMES A DAY
     Route: 048
     Dates: start: 20140620

REACTIONS (1)
  - Hypotension [Recovered/Resolved]

NARRATIVE: CASE EVENT DATE: 20140624
